FAERS Safety Report 6661096-X (Version None)
Quarter: 2010Q1

REPORT INFORMATION
  Report Type: 
  Country: None (occurrence: None)
  Receive Date: 20100331
  Receipt Date: 20100326
  Transmission Date: 20100710
  Serious: Yes (Other)
  Sender: FDA-Public Use
  Company Number: US-B.I. PHARMACEUTICALS,INC./RIDGEFIELD-2010-BP-03533BP

PATIENT
  Sex: Male
  Weight: 104.3 kg

DRUGS (27)
  1. ATROVENT HFA [Suspect]
  2. ZANTAC 150 [Suspect]
     Indication: MYALGIA
     Dosage: 900 MG
     Route: 048
     Dates: start: 20030901
  3. ZANTAC 150 [Suspect]
     Indication: LIVER DISORDER
  4. GLIPIZIDE [Suspect]
     Indication: DIABETES MELLITUS
     Dosage: 20 MG
     Route: 048
  5. GLIPIZIDE [Suspect]
     Indication: MUSCLE SPASMS
  6. GLIPIZIDE [Suspect]
     Indication: OEDEMA
  7. METFORMIN HCL [Suspect]
     Indication: DIABETES MELLITUS
     Route: 048
     Dates: end: 20090101
  8. FINASTERIDE [Suspect]
     Indication: OEDEMA
     Dosage: 5 MG
     Route: 048
     Dates: start: 20080801
  9. ACTOS [Suspect]
     Indication: DIABETES MELLITUS
     Dosage: 45 MG
     Route: 048
     Dates: start: 20090108
  10. SIMVASTATIN [Suspect]
     Indication: BLOOD CHOLESTEROL INCREASED
     Dosage: 40 MG
     Route: 048
  11. SIMVASTATIN [Suspect]
     Indication: ALANINE AMINOTRANSFERASE INCREASED
  12. ALBUTEROL SULFATE AUTOHALER [Suspect]
     Indication: RESPIRATORY TRACT INFECTION VIRAL
     Dosage: 12 MG
     Route: 048
     Dates: start: 20070301
  13. ALBUTEROL SULFATE AUTOHALER [Suspect]
     Indication: RHINITIS
  14. ALBUTEROL SULFATE AUTOHALER [Suspect]
     Indication: COUGH
  15. ALLOPURINOL [Suspect]
     Indication: HEPATIC ENZYME INCREASED
     Route: 048
     Dates: start: 20040201
  16. COLCHICINE [Suspect]
     Indication: ALANINE AMINOTRANSFERASE INCREASED
     Route: 048
     Dates: start: 20020201
  17. GLUCOPHAGE [Suspect]
     Route: 048
     Dates: start: 20090201
  18. LORATADINE [Suspect]
     Dosage: 10 MG
     Route: 048
     Dates: start: 20081101
  19. NASAREL [Suspect]
     Indication: OEDEMA PERIPHERAL
     Dates: start: 20031201, end: 20061101
  20. OMEPRAZOLE [Suspect]
     Indication: OEDEMA PERIPHERAL
     Dosage: 40 MG
     Route: 048
     Dates: start: 20040701
  21. OMEPRAZOLE [Suspect]
     Indication: ALANINE AMINOTRANSFERASE INCREASED
  22. OXYCODONE [Suspect]
     Route: 065
     Dates: start: 20100201
  23. PENTOXIFYLLINE [Suspect]
     Indication: OEDEMA
     Dosage: 800 MG
     Route: 048
     Dates: start: 20020501
  24. PENTOXIFYLLINE [Suspect]
     Indication: INFLUENZA
  25. PENTOXIFYLLINE [Suspect]
     Indication: HEPATIC ENZYME INCREASED
  26. LASIX [Suspect]
     Indication: FLUID RETENTION
     Dosage: 20 MG
     Route: 048
     Dates: start: 20090101
  27. METFORMIN XR (METFORMIN) [Concomitant]
     Indication: DIABETES MELLITUS
     Dosage: 2000 MG
     Dates: start: 20090101

REACTIONS (7)
  - ALANINE AMINOTRANSFERASE INCREASED [None]
  - BLOOD GLUCOSE INCREASED [None]
  - DRUG INEFFECTIVE [None]
  - GINGIVAL DISORDER [None]
  - INFLUENZA LIKE ILLNESS [None]
  - MUSCLE SPASMS [None]
  - OEDEMA PERIPHERAL [None]
